FAERS Safety Report 6987288-8 (Version None)
Quarter: 2010Q3

REPORT INFORMATION
  Report Type: 
  Country: None (occurrence: None)
  Receive Date: 20100916
  Receipt Date: 20100902
  Transmission Date: 20110219
  Serious: Yes (Life-Threatening, Hospitalization)
  Sender: FDA-Public Use
  Company Number: GB-RANBAXY-2010R1-38109

PATIENT

DRUGS (9)
  1. RISPERIDONE [Suspect]
     Indication: SENILE PSYCHOSIS
     Dosage: 1.5 MG, QD
     Route: 048
     Dates: start: 20100728
  2. BUMETANIDE [Suspect]
     Indication: PULMONARY OEDEMA
     Dosage: 1 MG, BID
     Route: 048
     Dates: start: 20100813, end: 20100814
  3. AMLODIPINE [Concomitant]
     Indication: PRODUCT USED FOR UNKNOWN INDICATION
     Route: 065
  4. DOXAZOSIN MESYLATE [Concomitant]
     Indication: PRODUCT USED FOR UNKNOWN INDICATION
     Route: 065
  5. FLUCLOXACILLIN [Concomitant]
     Indication: CELLULITIS
     Dosage: 500 MG,QID
     Route: 065
  6. FUROSEMIDE [Concomitant]
     Indication: RALES
     Dosage: 40 MG, BID
     Route: 065
  7. FUROSEMIDE [Concomitant]
     Indication: OEDEMA PERIPHERAL
  8. MOXONIDINE [Concomitant]
     Indication: PRODUCT USED FOR UNKNOWN INDICATION
     Route: 065
  9. ZOPICLONE [Concomitant]
     Indication: PRODUCT USED FOR UNKNOWN INDICATION
     Route: 065

REACTIONS (7)
  - ASTHENIA [None]
  - BRADYCARDIA [None]
  - HYPOTENSION [None]
  - HYPOTHERMIA [None]
  - LIP SWELLING [None]
  - MALAISE [None]
  - TACHYPNOEA [None]
